FAERS Safety Report 8402856-4 (Version None)
Quarter: 2012Q2

REPORT INFORMATION
  Report Type: 
  Country: None (occurrence: None)
  Receive Date: 20120323
  Receipt Date: 20110407
  Transmission Date: 20120825
  Serious: Yes (Other)
  Sender: FDA-Public Use
  Company Number: 163-21880-11040954

PATIENT
  Age: 75 Year
  Sex: Male
  Weight: 76.2 kg

DRUGS (4)
  1. VELCADE [Concomitant]
  2. REVLIMID [Suspect]
     Indication: MULTIPLE MYELOMA
     Dosage: 10 MG, DAILY FOR 14 DAYS THEN 7 DAYS OFF, PO
     Route: 048
     Dates: start: 20070725
  3. DEXAMETHASONE [Concomitant]
  4. ZOMETA [Concomitant]

REACTIONS (1)
  - NEUROPATHY PERIPHERAL [None]
